FAERS Safety Report 19727930 (Version 1)
Quarter: 2021Q3

REPORT INFORMATION
  Report Type: Spontaneous
  Country: US (occurrence: US)
  Receive Date: 20210820
  Receipt Date: 20210820
  Transmission Date: 20211014
  Serious: Yes (Hospitalization)
  Sender: FDA-Public Use
  Company Number: US-JNJFOC-20210827163

PATIENT
  Sex: Male

DRUGS (2)
  1. XARELTO [Suspect]
     Active Substance: RIVAROXABAN
     Indication: PRODUCT USED FOR UNKNOWN INDICATION
     Route: 048
  2. DIGOXIN. [Suspect]
     Active Substance: DIGOXIN
     Indication: PRODUCT USED FOR UNKNOWN INDICATION
     Route: 065

REACTIONS (7)
  - Diverticulitis [Unknown]
  - Haemorrhoidal haemorrhage [Unknown]
  - Pollakiuria [Unknown]
  - Weight decreased [Unknown]
  - Joint swelling [Unknown]
  - Chromaturia [Unknown]
  - Memory impairment [Unknown]

NARRATIVE: CASE EVENT DATE: 2021
